FAERS Safety Report 5294039-4 (Version None)
Quarter: 2007Q2

REPORT INFORMATION
  Report Type: 
  Country: None (occurrence: None)
  Receive Date: 20070404
  Receipt Date: 20070323
  Transmission Date: 20071010
  Serious: Yes (Hospitalization)
  Sender: FDA-Public Use
  Company Number: SU-2007-005845

PATIENT
  Age: 76 Year
  Sex: Female

DRUGS (1)
  1. BENICAR HCT [Suspect]
     Indication: HYPERTENSION
     Dosage: 40.25 MG QD PO
     Route: 048
     Dates: start: 20070103, end: 20070115

REACTIONS (2)
  - BLOOD SODIUM DECREASED [None]
  - CONFUSIONAL STATE [None]
